FAERS Safety Report 15925618 (Version 3)
Quarter: 2019Q2

REPORT INFORMATION
  Report Type: Spontaneous
  Country: AU (occurrence: AU)
  Receive Date: 20190206
  Receipt Date: 20190603
  Transmission Date: 20190711
  Serious: Yes (Hospitalization)
  Sender: FDA-Public Use
  Company Number: AU-009507513-1902AUS001511

PATIENT
  Age: 41 Year
  Sex: Female

DRUGS (2)
  1. MOMETASONE FUROATE. [Suspect]
     Active Substance: MOMETASONE FUROATE
     Indication: RASH ERYTHEMATOUS
     Dosage: UNK
     Route: 061
  2. PREDNISOLONE. [Suspect]
     Active Substance: PREDNISOLONE
     Indication: RASH ERYTHEMATOUS
     Dosage: UNK, SLOW WEANING COURSE

REACTIONS (1)
  - Drug ineffective [Recovered/Resolved]
